FAERS Safety Report 4288567-8 (Version None)
Quarter: 2004Q1

REPORT INFORMATION
  Report Type: 
  Country: None (occurrence: None)
  Receive Date: 20040204
  Receipt Date: 20040123
  Transmission Date: 20041129
  Serious: Yes (Hospitalization)
  Sender: FDA-Public Use
  Company Number: 200311479JP

PATIENT
  Age: 66 Year
  Sex: Female
  Weight: 40 kg

DRUGS (16)
  1. ARAVA [Suspect]
     Indication: RHEUMATOID ARTHRITIS
     Dosage: 10 MG/DAY PO
     Route: 048
     Dates: start: 20030920, end: 20031017
  2. ARAVA [Suspect]
     Indication: RHEUMATOID ARTHRITIS
     Dosage: 10 MG/DAY PO
     Route: 048
     Dates: start: 20031101, end: 20031209
  3. NU-LOTAN [Concomitant]
  4. D-ALFA [Concomitant]
  5. RIMATIL [Concomitant]
  6. LOXONIN [Concomitant]
  7. PREDONINE [Concomitant]
  8. ZANTAC [Concomitant]
  9. AZULFIDINE [Concomitant]
  10. BENET [Concomitant]
  11. METHOTREXATE [Concomitant]
  12. FOLIAMIN [Concomitant]
  13. VOLTAREN [Concomitant]
  14. MOHRUS TAPE [Concomitant]
  15. SHIOSOL [Concomitant]
  16. ELCATONIN [Concomitant]

REACTIONS (11)
  - C-REACTIVE PROTEIN DECREASED [None]
  - CHEST PAIN [None]
  - DIARRHOEA [None]
  - DRUG LEVEL DECREASED [None]
  - DYSPNOEA EXACERBATED [None]
  - GASTRIC ULCER HAEMORRHAGE [None]
  - INTERSTITIAL LUNG DISEASE [None]
  - LYMPHOCYTE COUNT INCREASED [None]
  - PYREXIA [None]
  - UPPER RESPIRATORY TRACT INFECTION [None]
  - WHITE BLOOD CELL COUNT INCREASED [None]
